FAERS Safety Report 12309862 (Version 1)
Quarter: 2016Q2

REPORT INFORMATION
  Report Type: Spontaneous
  Country: US (occurrence: None)
  Receive Date: 20160426
  Receipt Date: 20160426
  Transmission Date: 20160815
  Serious: Yes (Other)
  Sender: FDA-Public Use
  Company Number: None

PATIENT
  Age: 69 Year
  Sex: Male
  Weight: 134.27 kg

DRUGS (2)
  1. VOLTAREN [Concomitant]
     Active Substance: DICLOFENAC SODIUM
  2. PENNSAID [Suspect]
     Active Substance: DICLOFENAC SODIUM
     Indication: OSTEOARTHRITIS
     Dosage: 1 PATCH(ES) AT BEDTIME APPLIED TO A SURFACE, USUALLY THE SKIN
     Route: 061
     Dates: start: 20160417, end: 20160418

REACTIONS (1)
  - Application site rash [None]

NARRATIVE: CASE EVENT DATE: 20160417
